FAERS Safety Report 4533354-6 (Version None)
Quarter: 2004Q4

REPORT INFORMATION
  Report Type: 
  Country: None (occurrence: None)
  Receive Date: 20041210
  Receipt Date: 20040811
  Transmission Date: 20050328
  Serious: No
  Sender: FDA-Public Use
  Company Number: A03200402742

PATIENT

DRUGS (1)
  1. ELOXATIN [Suspect]
     Dosage: RESPIRATORY (INHALATION)
     Route: 055

REACTIONS (4)
  - ACCIDENTAL EXPOSURE [None]
  - EYE IRRITATION [None]
  - NASAL DISCOMFORT [None]
  - OCCUPATIONAL EXPOSURE TO TOXIC AGENT [None]
